FAERS Safety Report 6478049-7 (Version None)
Quarter: 2009Q4

REPORT INFORMATION
  Report Type: 
  Country: None (occurrence: None)
  Receive Date: 20091203
  Receipt Date: 20091203
  Transmission Date: 20100525
  Serious: Yes (Other)
  Sender: FDA-Public Use
  Company Number: None

PATIENT
  Age: 55 Year
  Sex: Female
  Weight: 85.2762 kg

DRUGS (1)
  1. CIPROFLOXACIN HCL [Suspect]
     Indication: INFECTION
     Dosage: 250 MG 1 TAB TWICE A DAY PO
     Route: 048
     Dates: start: 20091114, end: 20091114

REACTIONS (20)
  - ABDOMINAL PAIN [None]
  - ARTHRALGIA [None]
  - BACK PAIN [None]
  - BLOOD PRESSURE INCREASED [None]
  - BURNING SENSATION [None]
  - DIZZINESS [None]
  - DRUG HYPERSENSITIVITY [None]
  - FORMICATION [None]
  - GLOSSODYNIA [None]
  - HYPOAESTHESIA [None]
  - INSOMNIA [None]
  - MUSCLE SPASMS [None]
  - MUSCULAR WEAKNESS [None]
  - MUSCULOSKELETAL PAIN [None]
  - NAUSEA [None]
  - NECK PAIN [None]
  - ORAL DISCOMFORT [None]
  - PAIN [None]
  - THINKING ABNORMAL [None]
  - TREMOR [None]
